FAERS Safety Report 13041298 (Version 1)
Quarter: 2016Q4

REPORT INFORMATION
  Report Type: Spontaneous
  Country: US (occurrence: US)
  Receive Date: 20161219
  Receipt Date: 20161219
  Transmission Date: 20170207
  Serious: No
  Sender: FDA-Public Use
  Company Number: US-ROCHE-1059214

PATIENT
  Sex: Female

DRUGS (2)
  1. ZELBORAF [Suspect]
     Active Substance: VEMURAFENIB
     Indication: PRODUCT USED FOR UNKNOWN INDICATION
     Dosage: DOSE WAS REDUCED DUE TO EXTREME JOINT PAIN
     Route: 065
  2. ZELBORAF [Suspect]
     Active Substance: VEMURAFENIB
     Dosage: DOSE WAS REDUCED DUE TO EXTREME
     Route: 065

REACTIONS (1)
  - Arthralgia [Not Recovered/Not Resolved]
